FAERS Safety Report 7124685-4 (Version None)
Quarter: 2010Q4

REPORT INFORMATION
  Report Type: 
  Country: None (occurrence: None)
  Receive Date: 20101123
  Receipt Date: 20101123
  Transmission Date: 20110411
  Serious: Yes (Other)
  Sender: FDA-Public Use
  Company Number: None

PATIENT
  Age: 22 Year
  Sex: Female
  Weight: 95.709 kg

DRUGS (1)
  1. METHYLPREDNISOLONE 4MG TAB [Suspect]
     Indication: ARTHRITIS
     Dosage: 6 PILLS, DECREASING TO 1  6 DAYS PO
     Route: 048
     Dates: start: 20101117, end: 20101118

REACTIONS (10)
  - ANXIETY [None]
  - ARTHRALGIA [None]
  - BONE PAIN [None]
  - CHILLS [None]
  - DEPRESSION [None]
  - FEELING ABNORMAL [None]
  - HEADACHE [None]
  - HEART RATE INCREASED [None]
  - HYPOVENTILATION [None]
  - MYALGIA [None]
